FAERS Safety Report 5466057-4 (Version None)
Quarter: 2007Q3

REPORT INFORMATION
  Report Type: 
  Country: None (occurrence: None)
  Receive Date: 20070919
  Receipt Date: 20070913
  Transmission Date: 20080115
  Serious: Yes (Hospitalization)
  Sender: FDA-Public Use
  Company Number: 144-C5013-07081577

PATIENT
  Age: 58 Year
  Sex: Female

DRUGS (4)
  1. CC-5013 (LENALIDOMIDE) (CAPSULES) [Suspect]
     Indication: MULTIPLE MYELOMA
     Dosage: 15 MG, DAILY, ORAL; 25 MG, DAILY, ORAL
     Route: 048
     Dates: start: 20070501, end: 20070101
  2. CC-5013 (LENALIDOMIDE) (CAPSULES) [Suspect]
     Indication: MULTIPLE MYELOMA
     Dosage: 15 MG, DAILY, ORAL; 25 MG, DAILY, ORAL
     Route: 048
     Dates: start: 20070101, end: 20070801
  3. CORTICOIDS (CORTICOSTEROIDS) [Concomitant]
  4. DEXAMETHASONE TAB [Concomitant]

REACTIONS (6)
  - HAEMOPHILUS INFECTION [None]
  - IMMUNOSUPPRESSION [None]
  - MALIGNANT NEOPLASM PROGRESSION [None]
  - MENINGITIS BACTERIAL [None]
  - MULTIPLE MYELOMA [None]
  - TINNITUS [None]
